FAERS Safety Report 20547880 (Version 1)
Quarter: 2022Q1

REPORT INFORMATION
  Report Type: Spontaneous
  Country: US (occurrence: None)
  Receive Date: 20220303
  Receipt Date: 20220303
  Transmission Date: 20220423
  Serious: Yes (Other)
  Sender: FDA-Public Use
  Company Number: None

PATIENT
  Age: 60 Year
  Sex: Male

DRUGS (1)
  1. HUMIRA [Suspect]
     Active Substance: ADALIMUMAB
     Indication: Rheumatoid arthritis
     Dosage: 40MG OTHER SUBCUTANEOUS
     Route: 058
     Dates: start: 202009, end: 202108

REACTIONS (3)
  - Cough [None]
  - Pneumonia pseudomonal [None]
  - Asthma [None]

NARRATIVE: CASE EVENT DATE: 20210601
